FAERS Safety Report 7167241-4 (Version None)
Quarter: 2010Q4

REPORT INFORMATION
  Report Type: 
  Country: None (occurrence: None)
  Receive Date: 20101216
  Receipt Date: 20101203
  Transmission Date: 20110411
  Serious: Yes (Other)
  Sender: FDA-Public Use
  Company Number: FR-CELGENEUS-056-21880-10120502

PATIENT
  Age: 68 Year
  Sex: Male

DRUGS (4)
  1. REVLIMID [Suspect]
     Indication: MULTIPLE MYELOMA
     Route: 048
     Dates: start: 20100819
  2. REVLIMID [Suspect]
     Route: 048
     Dates: start: 20101025, end: 20101108
  3. DEXAMETHASONE [Concomitant]
     Indication: MULTIPLE MYELOMA
     Route: 065
     Dates: start: 20100819
  4. DEXAMETHASONE [Concomitant]
     Route: 065
     Dates: start: 20101025

REACTIONS (3)
  - DIPLOPIA [None]
  - DYSPHONIA [None]
  - MUSCULAR WEAKNESS [None]
